FAERS Safety Report 6572479-0 (Version None)
Quarter: 2010Q1

REPORT INFORMATION
  Report Type: 
  Country: None (occurrence: None)
  Receive Date: 20100205
  Receipt Date: 20100201
  Transmission Date: 20100710
  Serious: Yes (Congenital Anomaly)
  Sender: FDA-Public Use
  Company Number: SE-MERCK-1001SWE00010B1

PATIENT

DRUGS (6)
  1. SINGULAIR [Suspect]
     Route: 065
     Dates: start: 20070101
  2. FLUTICASONE PROPIONATE AND SALMETEROL XINAFOATE [Concomitant]
     Route: 065
  3. ALBUTEROL SULFATE [Concomitant]
     Route: 065
  4. CETIRIZINE HYDROCHLORIDE [Concomitant]
     Route: 065
  5. MOMETASONE FUROATE [Concomitant]
     Route: 065
  6. CROMOLYN SODIUM [Concomitant]
     Route: 065

REACTIONS (1)
  - TALIPES [None]
